FAERS Safety Report 12717012 (Version 1)
Quarter: 2016Q3

REPORT INFORMATION
  Report Type: Spontaneous
  Country: US (occurrence: US)
  Receive Date: 20160906
  Receipt Date: 20160906
  Transmission Date: 20161109
  Serious: No
  Sender: FDA-Public Use
  Company Number: US-BAYER-2016-172870

PATIENT

DRUGS (1)
  1. CLARITIN REDITABS [Suspect]
     Active Substance: LORATADINE
     Dosage: 2 DF, UNK

REACTIONS (1)
  - Incorrect dose administered [None]
